FAERS Safety Report 6071647-4 (Version None)
Quarter: 2009Q1

REPORT INFORMATION
  Report Type: 
  Country: None (occurrence: None)
  Receive Date: 20090210
  Receipt Date: 20090205
  Transmission Date: 20090719
  Serious: No
  Sender: FDA-Public Use
  Company Number: AU-JNJFOC-20090201000

PATIENT
  Age: 39 Year
  Sex: Female

DRUGS (4)
  1. DURAGESIC-100 [Suspect]
     Indication: PAIN
     Route: 062
  2. CRESTOR [Concomitant]
  3. PROZAC [Concomitant]
     Route: 065
  4. VALIUM [Concomitant]
     Route: 065

REACTIONS (3)
  - DRUG INEFFECTIVE [None]
  - PRODUCT QUALITY ISSUE [None]
  - WRONG TECHNIQUE IN DRUG USAGE PROCESS [None]
